FAERS Safety Report 15745202 (Version 1)
Quarter: 2018Q4

REPORT INFORMATION
  Report Type: Spontaneous
  Country: US (occurrence: US)
  Receive Date: 20181220
  Receipt Date: 20181220
  Transmission Date: 20190205
  Serious: No
  Sender: FDA-Public Use
  Company Number: US-ADAMAS PHARMA, LLC-2018ADA02127

PATIENT
  Age: 73 Year
  Sex: Male

DRUGS (11)
  1. GOCOVRI [Suspect]
     Active Substance: AMANTADINE
     Dosage: 274 MG, 1X/DAY AT BEDTIME
     Route: 048
     Dates: start: 20180831, end: 2018
  2. MELATONIN [Concomitant]
     Active Substance: MELATONIN
  3. VITAMIN C [Concomitant]
     Active Substance: ASCORBIC ACID
  4. GOCOVRI [Suspect]
     Active Substance: AMANTADINE
     Dosage: 137 MG, 1X/DAY AT BEDTIME
     Route: 048
     Dates: start: 20180824, end: 20180830
  5. CRESTOR [Concomitant]
     Active Substance: ROSUVASTATIN CALCIUM
  6. LISINOPRIL. [Concomitant]
     Active Substance: LISINOPRIL
  7. LEVODOPA [Concomitant]
     Active Substance: LEVODOPA
  8. ASPIRIN. [Concomitant]
     Active Substance: ASPIRIN
  9. VITAMIN D3 [Concomitant]
     Active Substance: CHOLECALCIFEROL
  10. NAMENDA [Concomitant]
     Active Substance: MEMANTINE HYDROCHLORIDE
  11. XANAX [Concomitant]
     Active Substance: ALPRAZOLAM

REACTIONS (2)
  - Unevaluable event [Recovered/Resolved]
  - Dyskinesia [Not Recovered/Not Resolved]

NARRATIVE: CASE EVENT DATE: 2018
